FAERS Safety Report 14190149 (Version 3)
Quarter: 2017Q4

REPORT INFORMATION
  Report Type: Spontaneous
  Country: JP (occurrence: JP)
  Receive Date: 20171115
  Receipt Date: 20171227
  Transmission Date: 20180321
  Serious: Yes (Other)
  Sender: FDA-Public Use
  Company Number: JP-ASTRAZENECA-2017SF14504

PATIENT
  Age: 73 Year
  Sex: Female

DRUGS (5)
  1. IRESSA [Suspect]
     Active Substance: GEFITINIB
     Indication: LUNG ADENOCARCINOMA
     Route: 048
     Dates: start: 20150813, end: 20160516
  2. TARCEVA [Suspect]
     Active Substance: ERLOTINIB HYDROCHLORIDE
     Indication: LUNG ADENOCARCINOMA
     Route: 065
  3. FEXOFENADINE HYDROCHLORIDE. [Concomitant]
     Active Substance: FEXOFENADINE HYDROCHLORIDE
     Route: 048
  4. MINOCYCLINE HYDROCHLORIDE. [Concomitant]
     Active Substance: MINOCYCLINE HYDROCHLORIDE
     Route: 048
  5. LACTOMIN [Concomitant]
     Active Substance: LACTOBACILLUS ACIDOPHILUS
     Route: 048

REACTIONS (4)
  - Aphasia [Unknown]
  - Amnesia [Unknown]
  - Metastases to meninges [Unknown]
  - Gait disturbance [Unknown]
